FAERS Safety Report 7084878-1 (Version None)
Quarter: 2010Q4

REPORT INFORMATION
  Report Type: 
  Country: None (occurrence: None)
  Receive Date: 20101027
  Receipt Date: 20101018
  Transmission Date: 20110411
  Serious: Yes (Hospitalization)
  Sender: FDA-Public Use
  Company Number: BVT-000465

PATIENT
  Age: 43 Year
  Sex: Male

DRUGS (6)
  1. KINERET [Suspect]
     Indication: STILL'S DISEASE ADULT ONSET
     Dosage: (100 MG QD SUBCUTANEOUS)
     Route: 058
     Dates: start: 20090407, end: 20091117
  2. IBUPROFEN [Concomitant]
  3. METHOTREXATE [Concomitant]
  4. CORTANCYL [Concomitant]
  5. PARACETAMOL [Concomitant]
  6. FENSAID [Concomitant]

REACTIONS (4)
  - IMPAIRED WORK ABILITY [None]
  - MAJOR DEPRESSION [None]
  - NO THERAPEUTIC RESPONSE [None]
  - SUICIDAL IDEATION [None]
